FAERS Safety Report 8389650-8 (Version None)
Quarter: 2012Q2

REPORT INFORMATION
  Report Type: 
  Country: None (occurrence: None)
  Receive Date: 20120528
  Receipt Date: 20120514
  Transmission Date: 20120825
  Serious: Yes (Other)
  Sender: FDA-Public Use
  Company Number: US-ROCHE-1070202

PATIENT

DRUGS (2)
  1. PACLITAXEL [Suspect]
     Indication: BREAST CANCER METASTATIC
     Dosage: ON DAYS 1-8
     Route: 042
  2. XELODA [Suspect]
     Indication: BREAST CANCER METASTATIC
     Dosage: ON DAYS 1-15
     Route: 048

REACTIONS (25)
  - MENTAL STATUS CHANGES [None]
  - DECREASED APPETITE [None]
  - CONSTIPATION [None]
  - DYSPEPSIA [None]
  - PALMAR-PLANTAR ERYTHRODYSAESTHESIA SYNDROME [None]
  - ORAL CANDIDIASIS [None]
  - RASH [None]
  - ANXIETY [None]
  - DYSPHAGIA [None]
  - OEDEMA [None]
  - HYPOVOLAEMIA [None]
  - FEBRILE NEUTROPENIA [None]
  - FATIGUE [None]
  - INSOMNIA [None]
  - PULMONARY EMBOLISM [None]
  - PAIN [None]
  - NEUTROPENIA [None]
  - BRACHIAL PLEXOPATHY [None]
  - VOMITING [None]
  - NEUROPATHY PERIPHERAL [None]
  - BLOOD ALKALINE PHOSPHATASE INCREASED [None]
  - ASPARTATE AMINOTRANSFERASE INCREASED [None]
  - MUCOSAL INFLAMMATION [None]
  - NAUSEA [None]
  - DEHYDRATION [None]
